FAERS Safety Report 19745684 (Version 4)
Quarter: 2025Q1

REPORT INFORMATION
  Report Type: Spontaneous
  Country: US (occurrence: US)
  Receive Date: 20210825
  Receipt Date: 20250319
  Transmission Date: 20250409
  Serious: No
  Sender: BIOGEN
  Company Number: US-BIOGEN-2021BI01042589

PATIENT
  Sex: Female

DRUGS (2)
  1. VUMERITY [Suspect]
     Active Substance: DIROXIMEL FUMARATE
     Indication: Multiple sclerosis
     Route: 050
     Dates: start: 202106
  2. VUMERITY [Suspect]
     Active Substance: DIROXIMEL FUMARATE
     Route: 050
     Dates: start: 20210618, end: 20211006

REACTIONS (4)
  - Drug ineffective [Unknown]
  - Multiple sclerosis [Not Recovered/Not Resolved]
  - Pain [Unknown]
  - Hypoaesthesia [Unknown]

NARRATIVE: CASE EVENT DATE: 20210101
